FAERS Safety Report 23923434 (Version 2)
Quarter: 2024Q2

REPORT INFORMATION
  Report Type: Spontaneous
  Country: JP (occurrence: JP)
  Receive Date: 20240531
  Receipt Date: 20240610
  Transmission Date: 20240716
  Serious: Yes (Other)
  Sender: FDA-Public Use
  Company Number: JP-SA-2024SA120841

PATIENT
  Age: 56 Year
  Sex: Female
  Weight: 47 kg

DRUGS (8)
  1. DUPIXENT [Suspect]
     Active Substance: DUPILUMAB
     Indication: Dermatitis atopic
     Dosage: 300 MG, 1X
     Route: 058
     Dates: start: 20240328, end: 20240328
  2. DUPIXENT [Suspect]
     Active Substance: DUPILUMAB
     Dosage: 300 MG, 1X
     Route: 058
     Dates: start: 20240308, end: 20240308
  3. NEORAL [Concomitant]
     Active Substance: CYCLOSPORINE
     Indication: Dermatitis atopic
     Dosage: 100 MG, 1-2 TIMES
     Route: 048
     Dates: start: 20230527, end: 20240327
  4. NEORAL [Concomitant]
     Active Substance: CYCLOSPORINE
     Indication: Toxic skin eruption
     Dosage: DAILY DOSE: 150 MG
     Route: 048
     Dates: start: 20240413, end: 20240511
  5. RUPAFIN [Concomitant]
     Active Substance: RUPATADINE FUMARATE
     Indication: Dermatitis atopic
     Dosage: DAILY DOSE: 10 MG
     Route: 048
     Dates: start: 20230121
  6. RUPAFIN [Concomitant]
     Active Substance: RUPATADINE FUMARATE
     Indication: Toxic skin eruption
  7. CLOBETASOL [Concomitant]
     Active Substance: CLOBETASOL
     Indication: Dermatitis atopic
     Dosage: 1 G, BID
     Route: 062
     Dates: start: 20230121
  8. CLOBETASOL [Concomitant]
     Active Substance: CLOBETASOL
     Indication: Toxic skin eruption

REACTIONS (3)
  - Toxic skin eruption [Recovering/Resolving]
  - Rash papular [Recovering/Resolving]
  - Pruritus [Recovering/Resolving]

NARRATIVE: CASE EVENT DATE: 20240401
